FAERS Safety Report 21515744 (Version 1)
Quarter: 2022Q4

REPORT INFORMATION
  Report Type: Spontaneous
  Country: US (occurrence: US)
  Receive Date: 20221027
  Receipt Date: 20221027
  Transmission Date: 20230113
  Serious: No
  Sender: FDA-Public Use
  Company Number: US-JNJFOC-20221043055

PATIENT
  Age: 80 Year
  Sex: Male

DRUGS (1)
  1. ERLEADA [Suspect]
     Active Substance: APALUTAMIDE
     Indication: Product used for unknown indication
     Dosage: 60MG TAB TAKE 4 TABLETS BY MOUTH ONCE DAILY
     Route: 048
     Dates: start: 20220628

REACTIONS (2)
  - COVID-19 [Unknown]
  - Bone disorder [Unknown]
